FAERS Safety Report 5802178-1 (Version None)
Quarter: 2008Q3

REPORT INFORMATION
  Report Type: 
  Country: None (occurrence: None)
  Receive Date: 20080702
  Receipt Date: 20080613
  Transmission Date: 20090109
  Serious: Yes (Hospitalization)
  Sender: FDA-Public Use
  Company Number: US023960

PATIENT
  Age: 60 Year

DRUGS (1)
  1. RIBOMUSTIN [Suspect]
     Indication: HEPATIC NEOPLASM MALIGNANT
     Dosage: INTRAVENOUS
     Route: 042

REACTIONS (2)
  - CHOLANGITIS [None]
  - NEOPLASM PROGRESSION [None]
